FAERS Safety Report 8350225-8 (Version None)
Quarter: 2012Q2

REPORT INFORMATION
  Report Type: 
  Country: None (occurrence: None)
  Receive Date: 20120510
  Receipt Date: 20120426
  Transmission Date: 20120825
  Serious: Yes (Hospitalization, Other)
  Sender: FDA-Public Use
  Company Number: FR-VERTEX PHARMACEUTICALS INC.-AE-2011-000614

PATIENT
  Sex: Female
  Weight: 64 kg

DRUGS (11)
  1. LEVOTHYROXINE SODIUM [Concomitant]
     Indication: HYPOTHYROIDISM
     Dates: start: 20090501
  2. RIBAVIRIN [Concomitant]
     Indication: HEPATITIS C
     Route: 048
     Dates: start: 20110324
  3. PEGINTERFERON ALFA-2A [Concomitant]
     Indication: HEPATITIS C
     Route: 058
     Dates: start: 20110324
  4. SPIRONOLACTONE [Concomitant]
  5. VX-950 [Suspect]
     Indication: HEPATITIS C
     Route: 048
     Dates: start: 20110324, end: 20110701
  6. EUPRESSYL [Concomitant]
     Indication: HYPERTENSION
     Route: 048
     Dates: start: 20090701
  7. PANTOPRAZOLE SODIUM [Concomitant]
  8. FUROSEMIDE [Concomitant]
  9. PROPRANOLOL [Concomitant]
     Indication: HYPERTENSION
  10. ACARBOSE [Concomitant]
     Indication: TYPE 2 DIABETES MELLITUS
     Route: 048
     Dates: start: 20090501
  11. OMEPRAZOLE [Concomitant]
     Indication: ABDOMINAL PAIN UPPER
     Dates: start: 20110801

REACTIONS (2)
  - CEREBELLAR SYNDROME [None]
  - RENAL FAILURE ACUTE [None]
